FAERS Safety Report 25156926 (Version 2)
Quarter: 2025Q2

REPORT INFORMATION
  Report Type: Spontaneous
  Country: TR (occurrence: TR)
  Receive Date: 20250403
  Receipt Date: 20250416
  Transmission Date: 20250717
  Serious: Yes (Other)
  Sender: TEVA
  Company Number: TR-ABBVIE-6188242

PATIENT
  Age: 40 Year
  Sex: Female

DRUGS (5)
  1. ACITRETIN [Suspect]
     Active Substance: ACITRETIN
     Indication: Palmoplantar keratoderma
     Route: 048
  2. ERLOTINIB [Suspect]
     Active Substance: ERLOTINIB
     Indication: Olmsted syndrome
     Route: 065
  3. ERLOTINIB [Suspect]
     Active Substance: ERLOTINIB
     Indication: Olmsted syndrome
     Route: 065
  4. ERLOTINIB [Suspect]
     Active Substance: ERLOTINIB
     Indication: Olmsted syndrome
     Route: 065
  5. PREGABALIN [Suspect]
     Active Substance: PREGABALIN
     Indication: Pain
     Route: 065

REACTIONS (6)
  - Drug ineffective [Unknown]
  - Therapeutic product effect incomplete [Unknown]
  - Nausea [Recovered/Resolved]
  - Abdominal distension [Recovered/Resolved]
  - Vomiting [Recovered/Resolved]
  - Dermatitis acneiform [Unknown]
